FAERS Safety Report 22369035 (Version 2)
Quarter: 2023Q2

REPORT INFORMATION
  Report Type: Report from Study
  Country: US (occurrence: US)
  Receive Date: 20230525
  Receipt Date: 20230630
  Transmission Date: 20230721
  Serious: Yes (Hospitalization, Other)
  Sender: FDA-Public Use
  Company Number: US-KARYOPHARM-2023KPT001095

PATIENT
  Age: 67 Year
  Sex: Male
  Weight: 92.6 kg

DRUGS (1)
  1. SELINEXOR [Suspect]
     Active Substance: SELINEXOR
     Indication: Glioblastoma multiforme
     Dosage: 20 MG, ON DAYS 8 AND 15 OF EACH 28-DAY CYCLE
     Route: 048
     Dates: start: 20230330, end: 20230413

REACTIONS (2)
  - Lymphocyte count decreased [Recovered/Resolved]
  - Brain oedema [Recovered/Resolved]

NARRATIVE: CASE EVENT DATE: 20230403
